FAERS Safety Report 9279428 (Version 2)
Quarter: 2013Q2

REPORT INFORMATION
  Report Type: Spontaneous
  Country: US (occurrence: US)
  Receive Date: 20130508
  Receipt Date: 20130521
  Transmission Date: 20140414
  Serious: Yes (Hospitalization, Other)
  Sender: FDA-Public Use
  Company Number: US-GILEAD-2013-0073645

PATIENT
  Age: 63 Year
  Sex: Male

DRUGS (16)
  1. LETAIRIS [Suspect]
     Indication: PULMONARY ARTERIAL HYPERTENSION
     Dosage: 5 MG, QD
     Dates: start: 20130409
  2. COUMADIN                           /00014802/ [Concomitant]
     Dosage: UNK
  3. K-DUR [Concomitant]
  4. ALDACTONE                          /00006201/ [Concomitant]
  5. LOPRESSOR [Concomitant]
  6. LASIX                              /00032601/ [Concomitant]
  7. AMARYL [Concomitant]
     Indication: TYPE 2 DIABETES MELLITUS
  8. ALBUTEROL                          /00139501/ [Concomitant]
  9. COZAAR [Concomitant]
  10. PRILOSEC                           /00661201/ [Concomitant]
  11. LEVOTHYROXINE [Concomitant]
  12. CORDARONE [Concomitant]
  13. NITROGLYCERIN [Concomitant]
  14. LANOXIN [Concomitant]
  15. FISH OIL [Concomitant]
  16. SPIRONOLACTONE [Concomitant]

REACTIONS (4)
  - Hepatic failure [Unknown]
  - Renal failure [Not Recovered/Not Resolved]
  - Fall [Unknown]
  - Blood glucose decreased [Unknown]
